FAERS Safety Report 24018478 (Version 1)
Quarter: 2024Q2

REPORT INFORMATION
  Report Type: Spontaneous
  Country: SE (occurrence: SE)
  Receive Date: 20240627
  Receipt Date: 20240627
  Transmission Date: 20240716
  Serious: Yes (Other)
  Sender: FDA-Public Use
  Company Number: SE-ALKEM LABORATORIES LIMITED-SE-ALKEM-2024-10726

PATIENT
  Age: 45 Year
  Sex: Male

DRUGS (38)
  1. CAFFEINE [Suspect]
     Active Substance: CAFFEINE
     Indication: Suicide attempt
     Dosage: UNK, TABLET
     Route: 065
  2. CLOZAPINE [Suspect]
     Active Substance: CLOZAPINE
     Indication: Schizoaffective disorder
     Dosage: 600 MG/DAY
     Route: 065
  3. CLOZAPINE [Suspect]
     Active Substance: CLOZAPINE
     Dosage: 450 MG/DAY
     Route: 065
  4. CLOZAPINE [Suspect]
     Active Substance: CLOZAPINE
     Dosage: 275 MG/DAY
     Route: 065
  5. CLOZAPINE [Suspect]
     Active Substance: CLOZAPINE
     Dosage: 500 MILLIGRAM
     Route: 065
  6. CLOZAPINE [Suspect]
     Active Substance: CLOZAPINE
     Dosage: 650 MILLIGRAM
     Route: 065
  7. CLOZAPINE [Suspect]
     Active Substance: CLOZAPINE
     Dosage: 600 MILLIGRAM
     Route: 065
  8. CLOZAPINE [Suspect]
     Active Substance: CLOZAPINE
     Dosage: 500 MILLIGRAM
     Route: 065
  9. CLOZAPINE [Suspect]
     Active Substance: CLOZAPINE
     Dosage: 450 MILLIGRAM
     Route: 065
  10. CLOZAPINE [Suspect]
     Active Substance: CLOZAPINE
     Dosage: 425 MILLIGRAM
     Route: 065
  11. CLOZAPINE [Suspect]
     Active Substance: CLOZAPINE
     Dosage: 400 MILLIGRAM
     Route: 065
  12. CLOZAPINE [Suspect]
     Active Substance: CLOZAPINE
     Dosage: 375 MILLIGRAM
     Route: 065
  13. CLOZAPINE [Suspect]
     Active Substance: CLOZAPINE
     Dosage: 350 MILLIGRAM
     Route: 065
  14. CLOZAPINE [Suspect]
     Active Substance: CLOZAPINE
     Dosage: 325 MILLIGRAM
     Route: 065
  15. CLOZAPINE [Suspect]
     Active Substance: CLOZAPINE
     Dosage: 300 MILLIGRAM
     Route: 065
  16. CLOZAPINE [Suspect]
     Active Substance: CLOZAPINE
     Dosage: 275 MILLIGRAM
     Route: 065
  17. VENLAFAXINE [Suspect]
     Active Substance: VENLAFAXINE HYDROCHLORIDE
     Indication: Schizoaffective disorder
     Dosage: 150 MILLIGRAM
     Route: 065
  18. VENLAFAXINE [Suspect]
     Active Substance: VENLAFAXINE HYDROCHLORIDE
     Dosage: 150 MILLIGRAM (VENLAFAXINE UP TO 150 MG ADDED TO RISPERIDONE/LITHIUM)
     Route: 065
  19. CITALOPRAM [Suspect]
     Active Substance: CITALOPRAM\CITALOPRAM HYDROBROMIDE
     Indication: Schizoaffective disorder
     Dosage: UNK
     Route: 065
  20. CITALOPRAM [Suspect]
     Active Substance: CITALOPRAM\CITALOPRAM HYDROBROMIDE
     Dosage: 90 MILLIGRAM
     Route: 065
  21. ZOLPIDEM [Suspect]
     Active Substance: ZOLPIDEM TARTRATE
     Indication: Suicide attempt
     Dosage: 7.5 MILLIGRAM
     Route: 065
  22. LITHIUM [Suspect]
     Active Substance: LITHIUM
     Indication: Schizoaffective disorder
     Dosage: 42 MILLIGRAM UP TO 6 TIMES
     Route: 065
  23. LITHIUM [Suspect]
     Active Substance: LITHIUM
     Dosage: 42 MILLIGRAM UP TO 6 TIMES (REINTRODUCTION OF RISPERIDONE COMBINED WITH LITHIUM)
     Route: 065
  24. LITHIUM [Suspect]
     Active Substance: LITHIUM
     Dosage: 42 MILLIGRAM UP TO 6 TIMES (RESTARTED)
     Route: 065
  25. NEFAZODONE [Suspect]
     Active Substance: NEFAZODONE
     Indication: Schizoaffective disorder
     Dosage: 100 MILLIGRAM
     Route: 065
  26. NEFAZODONE [Suspect]
     Active Substance: NEFAZODONE
     Dosage: 200 MILLIGRAM
     Route: 065
  27. NEFAZODONE [Suspect]
     Active Substance: NEFAZODONE
     Dosage: 400 MILLIGRAM
     Route: 065
  28. RISPERIDONE [Suspect]
     Active Substance: RISPERIDONE
     Indication: Schizoaffective disorder
     Dosage: 3 MILLIGRAM
     Route: 065
  29. RISPERIDONE [Suspect]
     Active Substance: RISPERIDONE
     Dosage: 4 MILLIGRAM
     Route: 065
  30. RISPERIDONE [Suspect]
     Active Substance: RISPERIDONE
     Dosage: 6 MILLIGRAM, RESTRTED
     Route: 065
  31. CARIPRAZINE [Concomitant]
     Active Substance: CARIPRAZINE
     Indication: Schizoaffective disorder
     Dosage: UNK (SLOW TITRATION REGIMEN UP TO 4.5 MG/DAY)
     Route: 065
  32. CARIPRAZINE [Concomitant]
     Active Substance: CARIPRAZINE
     Dosage: 6 MILLIGRAM
     Route: 065
  33. PERPHENAZINE [Concomitant]
     Active Substance: PERPHENAZINE
     Indication: Schizoaffective disorder
     Dosage: 24 MILLIGRAM
     Route: 065
  34. REBOXETINE [Concomitant]
     Active Substance: REBOXETINE
     Indication: Schizoaffective disorder
     Dosage: 6 MILLIGRAM
     Route: 065
  35. SERTRALINE [Concomitant]
     Active Substance: SERTRALINE HYDROCHLORIDE
     Indication: Schizoaffective disorder
     Dosage: 200 MILLIGRAM
     Route: 065
  36. VALPROATE [Concomitant]
     Active Substance: VALPROIC ACID
     Indication: Schizoaffective disorder
     Dosage: 600 MILLIGRAM
     Route: 065
  37. VALPROATE [Concomitant]
     Active Substance: VALPROIC ACID
     Dosage: 1200 MILLIGRAM
     Route: 065
  38. ZIPRASIDONE [Concomitant]
     Active Substance: ZIPRASIDONE
     Indication: Schizoaffective disorder
     Dosage: 80 MILLIGRAM
     Route: 065

REACTIONS (7)
  - Suicide attempt [Unknown]
  - Overdose [Unknown]
  - Toxicity to various agents [Unknown]
  - Constipation [Recovered/Resolved]
  - Enuresis [Recovered/Resolved]
  - Salivary hypersecretion [Recovered/Resolved]
  - Drug ineffective [Unknown]
